FAERS Safety Report 26103209 (Version 1)
Quarter: 2025Q4

REPORT INFORMATION
  Report Type: Spontaneous
  Country: US (occurrence: US)
  Receive Date: 20251129
  Receipt Date: 20251129
  Transmission Date: 20260118
  Serious: No
  Sender: IBSA INSTITUT BIOCHIMIQUE
  Company Number: US-IBSA PHARMA INC.-2024IBS000611

PATIENT
  Sex: Male

DRUGS (2)
  1. TIROSINT [Suspect]
     Active Substance: LEVOTHYROXINE SODIUM
     Indication: Product used for unknown indication
     Dosage: 88 MICROGRAM, QOD
  2. TIROSINT [Suspect]
     Active Substance: LEVOTHYROXINE SODIUM
     Dosage: 77 MICROGRAM, QOD

REACTIONS (3)
  - Blood thyroid stimulating hormone increased [Unknown]
  - Drug ineffective [Unknown]
  - Product quality issue [Unknown]
